FAERS Safety Report 6790353-1 (Version None)
Quarter: 2010Q2

REPORT INFORMATION
  Report Type: 
  Country: None (occurrence: None)
  Receive Date: 20100624
  Receipt Date: 20100610
  Transmission Date: 20101027
  Serious: Yes (Other)
  Sender: FDA-Public Use
  Company Number: PHEH2007US00745

PATIENT
  Sex: Female

DRUGS (8)
  1. ZELNORM [Suspect]
     Indication: IRRITABLE BOWEL SYNDROME
     Dosage: 6 MG, BID
     Route: 048
     Dates: start: 20061216, end: 20070207
  2. ZELNORM [Suspect]
     Dosage: 6 MG, BID
     Route: 048
     Dates: start: 20061219, end: 20061227
  3. ZELNORM [Suspect]
     Dosage: 6 MG, BID
     Route: 048
     Dates: start: 20070115, end: 20070122
  4. ZELNORM [Suspect]
     Dosage: 6 MG, BID
     Route: 048
     Dates: start: 20061216, end: 20070207
  5. SYNTHROID [Concomitant]
     Indication: HYPOTHYROIDISM
     Dosage: 150 MG, QD
  6. SYNTHROID [Concomitant]
     Dosage: 25 MG MONDAY AND FRIDAY
  7. CYMBALTA [Concomitant]
     Dosage: 60 MG, QD
  8. AMBIEN [Concomitant]

REACTIONS (55)
  - ACUTE SINUSITIS [None]
  - AGITATION [None]
  - ANHEDONIA [None]
  - ANXIETY [None]
  - BACK PAIN [None]
  - BALANCE DISORDER [None]
  - BRONCHITIS [None]
  - CHEST PAIN [None]
  - CHOLECYSTECTOMY [None]
  - CONSTIPATION [None]
  - CONTUSION [None]
  - COUGH [None]
  - DEAFNESS [None]
  - DECREASED APPETITE [None]
  - DEPRESSION [None]
  - DERMATITIS [None]
  - DIZZINESS [None]
  - DYSPHAGIA [None]
  - DYSPHONIA [None]
  - EAR CONGESTION [None]
  - EAR DISCOMFORT [None]
  - EAR PAIN [None]
  - EPISTAXIS [None]
  - FATIGUE [None]
  - FEELING ABNORMAL [None]
  - FLUSHING [None]
  - GASTROOESOPHAGEAL REFLUX DISEASE [None]
  - HEADACHE [None]
  - HYPERSENSITIVITY [None]
  - INFLUENZA LIKE ILLNESS [None]
  - INJURY [None]
  - JOINT STIFFNESS [None]
  - LABYRINTHITIS [None]
  - LYMPHADENECTOMY [None]
  - MENIERE'S DISEASE [None]
  - MUSCULAR WEAKNESS [None]
  - MUSCULOSKELETAL PAIN [None]
  - MYALGIA [None]
  - MYOCLONUS [None]
  - NASAL CONGESTION [None]
  - NASAL SEPTUM DEVIATION [None]
  - NASAL TURBINATE HYPERTROPHY [None]
  - OROPHARYNGEAL PAIN [None]
  - PAIN [None]
  - PARESIS [None]
  - PRURITUS [None]
  - PYREXIA [None]
  - RASH [None]
  - RHINORRHOEA [None]
  - SLEEP DISORDER [None]
  - SOMNOLENCE [None]
  - SWELLING FACE [None]
  - TINNITUS [None]
  - VERTIGO [None]
  - WEIGHT INCREASED [None]
